FAERS Safety Report 14977729 (Version 1)
Quarter: 2018Q2

REPORT INFORMATION
  Report Type: Spontaneous
  Country: AU (occurrence: AU)
  Receive Date: 20180606
  Receipt Date: 20180606
  Transmission Date: 20180711
  Serious: Yes (Other)
  Sender: FDA-Public Use
  Company Number: AU-009507513-1806AUS001067

PATIENT
  Sex: Female

DRUGS (4)
  1. PROTOPIC [Concomitant]
     Active Substance: TACROLIMUS
  2. PREDNISONE. [Suspect]
     Active Substance: PREDNISONE
     Route: 048
  3. HYDROCORTISONE. [Suspect]
     Active Substance: HYDROCORTISONE
     Route: 061
  4. ELOCON [Suspect]
     Active Substance: MOMETASONE FUROATE
     Dosage: UNK
     Route: 061

REACTIONS (1)
  - Steroid withdrawal syndrome [Not Recovered/Not Resolved]
